FAERS Safety Report 6547908-9 (Version None)
Quarter: 2010Q1

REPORT INFORMATION
  Report Type: 
  Country: None (occurrence: None)
  Receive Date: 20100124
  Receipt Date: 20091119
  Transmission Date: 20100710
  Serious: No
  Sender: FDA-Public Use
  Company Number: US-ALEXION-A200901002

PATIENT
  Sex: Female

DRUGS (9)
  1. SOLIRIS [Suspect]
     Indication: PAROXYSMAL NOCTURNAL HAEMOGLOBINURIA
     Dosage: 600 MG, Q WEEK FOR 4 WEEKS
     Route: 042
     Dates: start: 20090928, end: 20091020
  2. SOLIRIS [Suspect]
     Dosage: 900 MG, Q 2WEEKS
     Route: 042
     Dates: start: 20091027
  3. ZESTRIL [Concomitant]
     Indication: HYPERTENSION
     Dosage: 10 MG, QD
     Route: 048
  4. CARAFATE [Concomitant]
  5. METOPROLOL TARTRATE [Concomitant]
  6. PRILOSEC [Concomitant]
  7. PROZAC                             /00724401/ [Concomitant]
  8. ZOFRAN [Concomitant]
  9. COMPAZINE                          /00013302/ [Concomitant]

REACTIONS (2)
  - RHINORRHOEA [None]
  - VISION BLURRED [None]
